FAERS Safety Report 7008836-8 (Version None)
Quarter: 2010Q3

REPORT INFORMATION
  Report Type: 
  Country: None (occurrence: None)
  Receive Date: 20100923
  Receipt Date: 20100908
  Transmission Date: 20110219
  Serious: Yes (Death)
  Sender: FDA-Public Use
  Company Number: SE-MYLANLABS-2010S1016522

PATIENT
  Age: 25 Year
  Sex: Male

DRUGS (4)
  1. SODIUM OXYBATE [Suspect]
     Route: 065
  2. DIAZEPAM [Suspect]
     Route: 065
  3. CLONAZEPAM [Suspect]
     Route: 065
  4. MOCLOBEMIDE [Suspect]
     Route: 065

REACTIONS (2)
  - DRUG TOXICITY [None]
  - OVERDOSE [None]
